FAERS Safety Report 5742787-1 (Version None)
Quarter: 2008Q2

REPORT INFORMATION
  Report Type: 
  Country: None (occurrence: None)
  Receive Date: 20080515
  Receipt Date: 20080515
  Transmission Date: 20081010
  Serious: Yes (Hospitalization)
  Sender: FDA-Public Use
  Company Number: None

PATIENT
  Age: 62 Year
  Sex: Female

DRUGS (1)
  1. DIGOXIN [Suspect]
     Indication: CARDIAC DISORDER
     Dosage: 1 DAILY PO
     Route: 048
     Dates: start: 20080320, end: 20080509

REACTIONS (5)
  - BLOOD GLUCOSE ABNORMAL [None]
  - DRUG DOSE OMISSION [None]
  - PHARMACEUTICAL PRODUCT COMPLAINT [None]
  - RENAL FAILURE [None]
  - THERAPEUTIC AGENT TOXICITY [None]
